FAERS Safety Report 6456677-2 (Version None)
Quarter: 2009Q4

REPORT INFORMATION
  Report Type: 
  Country: None (occurrence: None)
  Receive Date: 20091125
  Receipt Date: 20091119
  Transmission Date: 20100525
  Serious: Yes (Hospitalization)
  Sender: FDA-Public Use
  Company Number: ES-SANOFI-AVENTIS-2009SA003303

PATIENT
  Age: 82 Year
  Sex: Male

DRUGS (9)
  1. SEGURIL [Suspect]
     Indication: DRUG USE FOR UNKNOWN INDICATION
     Dosage: DOSAGE: 1/2-0-0
     Route: 048
     Dates: start: 20090126
  2. CIPRALEX /DEN/ [Suspect]
     Indication: DEPRESSION
     Dosage: 1-0-0
     Route: 048
     Dates: start: 20090126, end: 20090301
  3. URBASON [Concomitant]
     Indication: DRUG USE FOR UNKNOWN INDICATION
     Dosage: 1/2-0-0
     Route: 048
     Dates: start: 20090209
  4. TAMSULOSIN [Concomitant]
     Dosage: DOSAGE: 1/2-0-1/2
     Route: 048
     Dates: start: 20051111
  5. OPONAF [Concomitant]
     Route: 048
     Dates: start: 20080225
  6. MESTINON [Concomitant]
     Dosage: 1/2-0-1/2
     Route: 048
     Dates: start: 20090302
  7. ENALAPRIL MALEATE [Concomitant]
     Dosage: DOSAGE: 1/2-0-1/2
     Route: 048
     Dates: start: 20051111
  8. FERRO ^SANOL^ [Concomitant]
     Dosage: DOSAGE: 1-1-0
     Route: 048
     Dates: start: 20090126
  9. CALCIUM-SANDOZ [Concomitant]
     Dosage: CADA 12 HORAS
     Route: 048
     Dates: start: 20090126

REACTIONS (2)
  - HAEMATURIA [None]
  - THROMBOCYTOPENIA [None]
